FAERS Safety Report 15664103 (Version 1)
Quarter: 2018Q4

REPORT INFORMATION
  Report Type: Spontaneous
  Country: US (occurrence: US)
  Receive Date: 20181116
  Receipt Date: 20181116
  Transmission Date: 20190205
  Serious: No
  Sender: FDA-Public Use
  Company Number: None

PATIENT
  Sex: Female
  Weight: 102 kg

DRUGS (1)
  1. MEROPENEM 1GM FRESENIUS KABI [Suspect]
     Active Substance: MEROPENEM
     Indication: SALPINGO-OOPHORITIS
     Route: 042
     Dates: start: 20180208

REACTIONS (1)
  - Urticaria [None]
